FAERS Safety Report 4615226-1 (Version None)
Quarter: 2005Q1

REPORT INFORMATION
  Report Type: 
  Country: None (occurrence: None)
  Receive Date: 20050322
  Receipt Date: 20050314
  Transmission Date: 20050727
  Serious: Yes (Hospitalization, Other)
  Sender: FDA-Public Use
  Company Number: PHEH2005US03386

PATIENT
  Age: 18 Year
  Sex: Female

DRUGS (3)
  1. TRILEPTAL [Suspect]
     Indication: EPILEPSY
     Route: 048
  2. NEURONTIN [Suspect]
  3. URBANYL [Suspect]

REACTIONS (6)
  - BALANCE DISORDER [None]
  - FALSE NEGATIVE LABORATORY RESULT [None]
  - OPTIC NEURITIS [None]
  - STATUS EPILEPTICUS [None]
  - VISUAL ACUITY REDUCED [None]
  - VISUAL FIELD DEFECT [None]
